FAERS Safety Report 19078059 (Version 1)
Quarter: 2021Q1

REPORT INFORMATION
  Report Type: Spontaneous
  Country: US (occurrence: US)
  Receive Date: 20210331
  Receipt Date: 20210331
  Transmission Date: 20210420
  Serious: Yes (Hospitalization)
  Sender: FDA-Public Use
  Company Number: None

PATIENT
  Age: 46 Year
  Sex: Male

DRUGS (1)
  1. OXYCODONE (OXYCODONE HCL 5MG TAB) [Suspect]
     Active Substance: OXYCODONE HYDROCHLORIDE
     Dates: start: 20201115, end: 20201128

REACTIONS (1)
  - Mental status changes [None]

NARRATIVE: CASE EVENT DATE: 20201128
